FAERS Safety Report 24084569 (Version 1)
Quarter: 2024Q3

REPORT INFORMATION
  Report Type: Spontaneous
  Country: JP (occurrence: JP)
  Receive Date: 20240712
  Receipt Date: 20240712
  Transmission Date: 20241017
  Serious: No
  Sender: PIERRE FABRE MEDICAMENT
  Company Number: JP-PFM-2022-00822

PATIENT
  Age: 4 Month
  Sex: Female

DRUGS (3)
  1. PROPRANOLOL HYDROCHLORIDE [Suspect]
     Active Substance: PROPRANOLOL HYDROCHLORIDE
     Indication: Infantile haemangioma
     Dosage: 1 MG/KG/DAY
     Route: 048
  2. PROPRANOLOL HYDROCHLORIDE [Suspect]
     Active Substance: PROPRANOLOL HYDROCHLORIDE
     Dosage: 0.5 MG/KG/DAY
     Route: 048
  3. Pulsed dye laser therapy [Concomitant]
     Indication: Infantile haemangioma
     Dosage: UNK
     Route: 065

REACTIONS (1)
  - Bradycardia [Recovered/Resolved]
